FAERS Safety Report 21307360 (Version 1)
Quarter: 2022Q3

REPORT INFORMATION
  Report Type: Other
  Country: CA (occurrence: CA)
  Receive Date: 20220908
  Receipt Date: 20220908
  Transmission Date: 20221026
  Serious: Yes (Other)
  Sender: FDA-Public Use
  Company Number: CA-APOTEX-2022AP012328

PATIENT
  Age: 68 Year
  Sex: Male

DRUGS (1)
  1. LENALIDOMIDE [Suspect]
     Active Substance: LENALIDOMIDE
     Indication: Blastic plasmacytoid dendritic cell neoplasia
     Dosage: 10 MILLIGRAM
     Route: 048

REACTIONS (2)
  - Product use issue [Unknown]
  - Cerebrovascular accident [Unknown]
